FAERS Safety Report 16982410 (Version 3)
Quarter: 2020Q1

REPORT INFORMATION
  Report Type: Spontaneous
  Country: HU (occurrence: HU)
  Receive Date: 20191101
  Receipt Date: 20200123
  Transmission Date: 20200409
  Serious: Yes (Other)
  Sender: FDA-Public Use
  Company Number: NVSC2019HU018407

PATIENT
  Sex: Male

DRUGS (4)
  1. PAZOPANIB [Suspect]
     Active Substance: PAZOPANIB
     Indication: CLEAR CELL RENAL CELL CARCINOMA
     Dosage: 400 MG, QD
     Route: 065
  2. NEBIVOLOL. [Suspect]
     Active Substance: NEBIVOLOL
     Indication: PRODUCT USED FOR UNKNOWN INDICATION
     Dosage: UNK
     Route: 065
  3. EXFORGE [Suspect]
     Active Substance: AMLODIPINE BESYLATE\VALSARTAN
     Indication: PRODUCT USED FOR UNKNOWN INDICATION
     Dosage: UNK
     Route: 065
  4. ASA PROTECT PHARMAVIT [Concomitant]
     Indication: PRODUCT USED FOR UNKNOWN INDICATION
     Dosage: UNK
     Route: 065

REACTIONS (32)
  - Thrombocytopenia [Unknown]
  - Left ventricular dysfunction [Unknown]
  - Lymphadenopathy [Unknown]
  - Aortic valve calcification [Unknown]
  - Alanine aminotransferase increased [Unknown]
  - Arteriosclerosis [Unknown]
  - Chronic obstructive pulmonary disease [Unknown]
  - Obesity [Unknown]
  - Hair colour changes [Unknown]
  - Necrosis [Unknown]
  - Ventricular hypokinesia [Unknown]
  - Aortic valve thickening [Unknown]
  - Hepatic enzyme increased [Unknown]
  - Weight decreased [Unknown]
  - Ejection fraction decreased [Unknown]
  - Atrial enlargement [Unknown]
  - Insulin resistance [Unknown]
  - Aspartate aminotransferase increased [Unknown]
  - Blood bilirubin increased [Unknown]
  - Fatigue [Unknown]
  - Left ventricular hypertrophy [Unknown]
  - Therapeutic product effect decreased [Unknown]
  - Pulmonary mass [Unknown]
  - Hyperlipidaemia [Unknown]
  - Focal nodular hyperplasia [Unknown]
  - Hypertension [Unknown]
  - Dyspnoea [Unknown]
  - Ascites [Unknown]
  - Metastases to lung [Unknown]
  - Clear cell renal cell carcinoma [Unknown]
  - Pulmonary hilum mass [Unknown]
  - Ventricular enlargement [Unknown]

NARRATIVE: CASE EVENT DATE: 2018
